FAERS Safety Report 7470919-6 (Version None)
Quarter: 2011Q2

REPORT INFORMATION
  Report Type: 
  Country: None (occurrence: None)
  Receive Date: 20110506
  Receipt Date: 20110506
  Transmission Date: 20111010
  Serious: Yes (Death)
  Sender: FDA-Public Use
  Company Number: None

PATIENT
  Age: 32 Year
  Sex: Female
  Weight: 104.3273 kg

DRUGS (1)
  1. GLYBURIDE [Suspect]
     Indication: GESTATIONAL DIABETES
     Dosage: 1 TAB DAILY MORNING + NIGHTTIME
     Dates: start: 20101021, end: 20101122

REACTIONS (10)
  - BLOOD GLUCOSE DECREASED [None]
  - SYNCOPE [None]
  - DRUG EXPOSURE DURING PREGNANCY [None]
  - HEART RATE IRREGULAR [None]
  - CONFUSIONAL STATE [None]
  - ASTHENIA [None]
  - DIZZINESS [None]
  - ANXIETY [None]
  - INTRA-UTERINE DEATH [None]
  - PYREXIA [None]
